FAERS Safety Report 4287716-5 (Version None)
Quarter: 2004Q1

REPORT INFORMATION
  Report Type: 
  Country: None (occurrence: None)
  Receive Date: 20040205
  Receipt Date: 20040116
  Transmission Date: 20041129
  Serious: Yes (Death, Other)
  Sender: FDA-Public Use
  Company Number: USA031254090

PATIENT
  Age: 51 Year
  Sex: Male

DRUGS (1)
  1. XIGRIS [Suspect]
     Indication: SEPSIS
     Dates: start: 20031204, end: 20031205

REACTIONS (5)
  - CATHETER SITE DISCHARGE [None]
  - CATHETER SITE HAEMORRHAGE [None]
  - HEPATORENAL FAILURE [None]
  - PROTHROMBIN TIME PROLONGED [None]
  - RESPIRATORY FAILURE [None]
